FAERS Safety Report 21131616 (Version 1)
Quarter: 2022Q3

REPORT INFORMATION
  Report Type: Spontaneous
  Country: IN (occurrence: IN)
  Receive Date: 20220726
  Receipt Date: 20220726
  Transmission Date: 20221027
  Serious: Yes (Death)
  Sender: FDA-Public Use
  Company Number: IN-PFIZER INC-202200426941

PATIENT
  Age: 58 Year
  Sex: Male

DRUGS (1)
  1. SUTENT [Suspect]
     Active Substance: SUNITINIB MALATE
     Dosage: 50 MG, CYCLIC (TWO WEEKS FOLLOWED BY ONE WEEK OFF)
     Route: 048
     Dates: start: 202111

REACTIONS (2)
  - Death [Fatal]
  - Neoplasm progression [Unknown]
